FAERS Safety Report 4499409-X (Version None)
Quarter: 2004Q4

REPORT INFORMATION
  Report Type: 
  Country: None (occurrence: None)
  Receive Date: 20040928
  Receipt Date: 20040806
  Transmission Date: 20050328
  Serious: No
  Sender: FDA-Public Use
  Company Number: 04P-163-0269639-00

PATIENT
  Age: 77 Year
  Sex: Female
  Weight: 4.858 kg

DRUGS (5)
  1. HUMIRA [Suspect]
     Indication: RHEUMATOID ARTHRITIS
     Dosage: 40 MG 1 IN 2 WK SUBCUTANEOUS
     Route: 058
     Dates: start: 20040602
  2. AZULFADINE [Concomitant]
  3. PREDNISONE [Concomitant]
  4. CANDESARTAN CILEXETIL [Concomitant]
  5. LEXAPRO [Concomitant]

REACTIONS (2)
  - ABDOMINAL PAIN UPPER [None]
  - PRURITUS [None]
